FAERS Safety Report 8172167-3 (Version None)
Quarter: 2012Q1

REPORT INFORMATION
  Report Type: 
  Country: None (occurrence: None)
  Receive Date: 20120228
  Receipt Date: 20120223
  Transmission Date: 20120608
  Serious: Yes (Death)
  Sender: FDA-Public Use
  Company Number: MX-ASTRAZENECA-2012SE13085

PATIENT

DRUGS (2)
  1. OTHER MEDICATION [Suspect]
  2. CRESTOR [Suspect]
     Route: 048

REACTIONS (1)
  - RENAL FAILURE [None]
